FAERS Safety Report 10539211 (Version 3)
Quarter: 2014Q4

REPORT INFORMATION
  Report Type: Report from Study
  Country: FR (occurrence: FR)
  Receive Date: 20141023
  Receipt Date: 20141029
  Transmission Date: 20150529
  Serious: Yes (Hospitalization, Other)
  Sender: FDA-Public Use
  Company Number: FR-GILEAD-2014-0091245

PATIENT
  Age: 59 Year
  Sex: Male
  Weight: 70 kg

DRUGS (10)
  1. PLAVIX [Concomitant]
     Active Substance: CLOPIDOGREL BISULFATE
     Dosage: UNK
     Dates: end: 201401
  2. BENDAMUSTINE [Suspect]
     Active Substance: BENDAMUSTINE
     Indication: CHRONIC LYMPHOCYTIC LEUKAEMIA
     Dosage: 135 MG, CYCLICAL
     Route: 042
     Dates: start: 20131227
  3. TAHOR [Concomitant]
     Active Substance: ATORVASTATIN CALCIUM
     Dosage: UNK
     Dates: end: 201401
  4. IDELALISIB [Suspect]
     Active Substance: IDELALISIB
     Indication: CHRONIC LYMPHOCYTIC LEUKAEMIA
     Dosage: 150 MG, UNK
     Route: 048
     Dates: start: 20131227, end: 20140103
  5. IDELALISIB [Suspect]
     Active Substance: IDELALISIB
     Dosage: UNK
     Route: 065
     Dates: start: 20140109
  6. RITUXIMAB [Suspect]
     Active Substance: RITUXIMAB
     Dosage: 193 MG, CYCLICAL
     Route: 042
     Dates: start: 20131226, end: 20131226
  7. KARDEGIC [Concomitant]
     Active Substance: ASPIRIN LYSINE
  8. ARANESP [Concomitant]
     Active Substance: DARBEPOETIN ALFA
  9. RITUXIMAB [Suspect]
     Active Substance: RITUXIMAB
     Indication: CHRONIC LYMPHOCYTIC LEUKAEMIA
     Dosage: 530 MG
     Route: 042
     Dates: start: 20131227
  10. FASTURTEC [Concomitant]
     Active Substance: RASBURICASE
     Dosage: UNK
     Dates: start: 20130102

REACTIONS (1)
  - Tumour lysis syndrome [Recovered/Resolved]

NARRATIVE: CASE EVENT DATE: 20140102
